FAERS Safety Report 4496822-1 (Version None)
Quarter: 2004Q4

REPORT INFORMATION
  Report Type: 
  Country: None (occurrence: None)
  Receive Date: 20041109
  Receipt Date: 20041104
  Transmission Date: 20050328
  Serious: Yes (Other)
  Sender: FDA-Public Use
  Company Number: PHEH2004US11931

PATIENT
  Age: 50 Year
  Sex: Male

DRUGS (6)
  1. CLOZARIL [Suspect]
     Indication: SCHIZOPHRENIA
     Dosage: 200 MG, BID
     Route: 048
     Dates: start: 20030601, end: 20040906
  2. CLOZARIL [Suspect]
     Dosage: 175 MG, BID
     Route: 048
     Dates: start: 20040907, end: 20041007
  3. CLOZARIL [Suspect]
     Dosage: 175MG QAM + 200MG QPM
     Route: 048
     Dates: start: 20041008
  4. HYDROCHLOROTHIAZIDE [Concomitant]
     Indication: HYPERTENSION
  5. ATENOLOL [Concomitant]
     Indication: HYPERTENSION
  6. DEPAKOTE [Concomitant]
     Indication: MOOD SWINGS

REACTIONS (3)
  - AGGRESSION [None]
  - DELUSION [None]
  - ELECTROCARDIOGRAM QT CORRECTED INTERVAL PROLONGED [None]
